FAERS Safety Report 10909146 (Version 1)
Quarter: 2015Q1

REPORT INFORMATION
  Report Type: Spontaneous
  Country: US (occurrence: US)
  Receive Date: 20150312
  Receipt Date: 20150312
  Transmission Date: 20150721
  Serious: No
  Sender: FDA-Public Use
  Company Number: US-SA-2014SA028588

PATIENT
  Age: 23 Year
  Sex: Male

DRUGS (1)
  1. NASACORT ALLERGY 24HR [Suspect]
     Active Substance: TRIAMCINOLONE ACETONIDE
     Route: 065

REACTIONS (6)
  - Myalgia [Unknown]
  - Fatigue [Unknown]
  - Arthralgia [Unknown]
  - Muscle twitching [Unknown]
  - Headache [Unknown]
  - Insomnia [Unknown]
